FAERS Safety Report 13325707 (Version 1)
Quarter: 2017Q1

REPORT INFORMATION
  Report Type: Other
  Country: US (occurrence: US)
  Receive Date: 20170310
  Receipt Date: 20170310
  Transmission Date: 20170428
  Serious: Yes (Other)
  Sender: FDA-Public Use
  Company Number: US-BELCHER PHARMACEUTICALS, LLC-2017VTS00598

PATIENT
  Sex: Male

DRUGS (1)
  1. HYOSCYAMINE SULFATE. [Suspect]
     Active Substance: HYOSCYAMINE SULFATE
     Dosage: 1 TABLETS, 4X/DAY

REACTIONS (10)
  - Diarrhoea [Unknown]
  - Chest discomfort [Unknown]
  - Pharyngeal oedema [Unknown]
  - Insomnia [Unknown]
  - Dysphonia [Unknown]
  - Mouth swelling [Unknown]
  - Memory impairment [Unknown]
  - Dizziness [Unknown]
  - Dyspnoea [Unknown]
  - Pyrexia [Unknown]
